FAERS Safety Report 6437435-1 (Version None)
Quarter: 2009Q4

REPORT INFORMATION
  Report Type: 
  Country: None (occurrence: None)
  Receive Date: 20091110
  Receipt Date: 20080505
  Transmission Date: 20100525
  Serious: No
  Sender: FDA-Public Use
  Company Number: AEUSA200800115

PATIENT
  Age: 63 Year
  Sex: Male

DRUGS (9)
  1. GAMUNEX [Suspect]
     Indication: AMYOTROPHY
     Dosage: 70 GM; QM; IV
     Route: 042
     Dates: end: 20080502
  2. GAMUNEX [Suspect]
     Indication: NEUROPATHY PERIPHERAL
     Dosage: 70 GM; QM; IV
     Route: 042
     Dates: end: 20080502
  3. GAMUNEX [Suspect]
  4. GAMUNEX [Suspect]
  5. PRAVACHOL [Concomitant]
  6. CARDIZEM [Concomitant]
  7. MULTI-VITAMINS [Concomitant]
  8. ASPIRIN /00002703/ [Concomitant]
  9. FISH OIL [Concomitant]

REACTIONS (3)
  - CONJUNCTIVITIS [None]
  - EYE HAEMORRHAGE [None]
  - PRODUCT QUALITY ISSUE [None]
